FAERS Safety Report 17433920 (Version 1)
Quarter: 2020Q1

REPORT INFORMATION
  Report Type: Report from Study
  Country: ES (occurrence: ES)
  Receive Date: 20200219
  Receipt Date: 20200219
  Transmission Date: 20200409
  Serious: Yes (Hospitalization)
  Sender: FDA-Public Use
  Company Number: ES-TEVA-2020-ES-1187698

PATIENT
  Age: 53 Year
  Sex: Female

DRUGS (6)
  1. RIBOFLAVINA (59A) [Concomitant]
     Dosage: 300 MG
     Route: 048
     Dates: start: 20190311, end: 20190829
  2. TRAMADOL HIDROCLORURO (2389CH) [Suspect]
     Active Substance: TRAMADOL
     Indication: SUICIDE ATTEMPT
     Dosage: 450 MG
     Route: 048
     Dates: start: 20190829, end: 20190829
  3. GABAPENTINA (2641A) [Concomitant]
     Active Substance: GABAPENTIN
     Dosage: 400 MG
     Route: 048
     Dates: start: 20190208, end: 20190829
  4. PARACETAMOL [Interacting]
     Active Substance: ACETAMINOPHEN
     Indication: SUICIDE ATTEMPT
     Dosage: 4 GRAM
     Route: 048
     Dates: start: 20190829, end: 20190829
  5. LORAZEPAM (1864A) [Interacting]
     Active Substance: LORAZEPAM
     Indication: SUICIDE ATTEMPT
     Dosage: 40 MG
     Route: 048
     Dates: start: 20190829, end: 20190829
  6. DIAZEPAM (730A) [Interacting]
     Active Substance: DIAZEPAM
     Indication: SUICIDE ATTEMPT
     Dosage: 300 MG
     Route: 048
     Dates: start: 20190829, end: 20190829

REACTIONS (3)
  - Depressed level of consciousness [Recovered/Resolved]
  - Intentional overdose [Recovered/Resolved]
  - Drug interaction [Unknown]

NARRATIVE: CASE EVENT DATE: 20190829
